FAERS Safety Report 8790738 (Version 1)
Quarter: 2012Q4

REPORT INFORMATION
  Report Type: Spontaneous
  Country: US (occurrence: None)
  Receive Date: 20120913
  Receipt Date: 20120913
  Transmission Date: 20130627
  Serious: Yes (Other)
  Sender: FDA-Public Use
  Company Number: None

PATIENT
  Age: 72 Year
  Sex: Male
  Weight: 80 kg

DRUGS (1)
  1. ROSUVASTATIN [Suspect]
     Indication: HYPERCHOLESTEROLEMIA
     Route: 048
     Dates: start: 201106, end: 20110828

REACTIONS (1)
  - Tendonitis [None]
